FAERS Safety Report 8856026 (Version 13)
Quarter: 2021Q2

REPORT INFORMATION
  Report Type: Report from Study
  Country: US (occurrence: US)
  Receive Date: 20121023
  Receipt Date: 20210409
  Transmission Date: 20210717
  Serious: Yes (Hospitalization, Other)
  Sender: FDA-Public Use
  Company Number: US-AMGEN-USASP2012058080

PATIENT
  Age: 62 Year
  Sex: Female

DRUGS (21)
  1. ENBREL [Suspect]
     Active Substance: ETANERCEPT
     Indication: ARTHRITIS
     Dosage: UNK
     Route: 065
  2. ENBREL [Suspect]
     Active Substance: ETANERCEPT
     Dosage: UNK UNK, QWK
     Route: 065
  3. VITAMIN D3 [Concomitant]
     Active Substance: CHOLECALCIFEROL
     Indication: SUPPLEMENTATION THERAPY
     Dosage: 2000 MG, BID
  4. ORENCIA [Concomitant]
     Active Substance: ABATACEPT
     Indication: ARTHRITIS
     Dosage: UNK
     Route: 065
  5. XALATAN [Concomitant]
     Active Substance: LATANOPROST
     Dosage: UNK
  6. ENBREL [Suspect]
     Active Substance: ETANERCEPT
     Dosage: UNK
     Route: 065
  7. LIBRAX [Concomitant]
     Active Substance: CHLORDIAZEPOXIDE HYDROCHLORIDE\CLIDINIUM BROMIDE
     Indication: IRRITABLE BOWEL SYNDROME
     Dosage: UNK
  8. XELJANZ [Concomitant]
     Active Substance: TOFACITINIB CITRATE
     Indication: ARTHRITIS
     Dosage: UNK
     Route: 065
  9. HYDROCODEINE [Suspect]
     Active Substance: DIHYDROCODEINE PHOSPHATE
     Indication: PAIN
     Dosage: 5 MG, UNK
     Route: 065
     Dates: start: 201608, end: 201610
  10. FIBER [Concomitant]
     Active Substance: PSYLLIUM HUSK
     Indication: SUPPLEMENTATION THERAPY
     Dosage: 4 G, BID
  11. XELJANZ [Concomitant]
     Active Substance: TOFACITINIB CITRATE
     Dosage: 11 MG, QD
     Route: 048
  12. ACETAMINOPHEN. [Suspect]
     Active Substance: ACETAMINOPHEN
     Indication: PAIN
     Dosage: 325 MG, UNK
     Route: 065
     Dates: start: 201608, end: 201610
  13. PROBIOTICS [Concomitant]
     Active Substance: PROBIOTICS NOS
     Indication: PROBIOTIC THERAPY
     Dosage: UNK
  14. ENBREL [Suspect]
     Active Substance: ETANERCEPT
     Indication: RHEUMATOID ARTHRITIS
     Dosage: 50 MILLIGRAM, QWK
     Route: 065
     Dates: start: 20000101
  15. ENBREL [Suspect]
     Active Substance: ETANERCEPT
     Dosage: UNK
     Route: 065
     Dates: start: 20170117
  16. ENBREL [Suspect]
     Active Substance: ETANERCEPT
     Dosage: UNK
     Route: 065
  17. CODEINE [Suspect]
     Active Substance: CODEINE
     Indication: PRODUCT USED FOR UNKNOWN INDICATION
     Dosage: UNK
     Route: 065
  18. HUMIRA [Concomitant]
     Active Substance: ADALIMUMAB
     Dosage: UNK
     Dates: start: 2001
  19. XELJANZ [Concomitant]
     Active Substance: TOFACITINIB CITRATE
     Dosage: 5 MG, QD
     Route: 048
  20. VITAMIN D [Concomitant]
     Active Substance: VITAMIN D NOS
     Dosage: UNK
  21. LEFLUNOMIDE. [Concomitant]
     Active Substance: LEFLUNOMIDE
     Dosage: UNK

REACTIONS (50)
  - Epistaxis [Recovered/Resolved]
  - Arthropathy [Not Recovered/Not Resolved]
  - Basal cell carcinoma [Not Recovered/Not Resolved]
  - Acne [Recovered/Resolved]
  - Mouth haemorrhage [Recovered/Resolved]
  - Gait inability [Not Recovered/Not Resolved]
  - Arthritis [Not Recovered/Not Resolved]
  - Escherichia infection [Recovered/Resolved]
  - Escherichia urinary tract infection [Recovered/Resolved]
  - Cyst [Not Recovered/Not Resolved]
  - Hypoacusis [Recovered/Resolved]
  - Illness [Recovered/Resolved]
  - Rash [Recovered/Resolved]
  - Candida infection [Recovered/Resolved]
  - Fatigue [Not Recovered/Not Resolved]
  - Mobility decreased [Not Recovered/Not Resolved]
  - Osteopenia [Unknown]
  - Skin disorder [Recovered/Resolved]
  - Streptococcal urinary tract infection [Recovered/Resolved]
  - Swollen tongue [Recovered/Resolved]
  - Irritable bowel syndrome [Not Recovered/Not Resolved]
  - Muscle spasms [Not Recovered/Not Resolved]
  - Rhinorrhoea [Not Recovered/Not Resolved]
  - Breast pain [Not Recovered/Not Resolved]
  - Eye pain [Recovered/Resolved]
  - Dry mouth [Not Recovered/Not Resolved]
  - Eyelid cyst [Recovered/Resolved]
  - Oral candidiasis [Not Recovered/Not Resolved]
  - Stress [Not Recovered/Not Resolved]
  - Expired product administered [Unknown]
  - Neoplasm malignant [Recovered/Resolved]
  - Vaginal cyst [Recovered/Resolved]
  - Ocular discomfort [Not Recovered/Not Resolved]
  - Cough [Recovered/Resolved]
  - Accident [Unknown]
  - Flatulence [Not Recovered/Not Resolved]
  - Diarrhoea [Not Recovered/Not Resolved]
  - Urinary tract infection [Not Recovered/Not Resolved]
  - Hypertension [Unknown]
  - Rheumatoid arthritis [Not Recovered/Not Resolved]
  - Alopecia [Not Recovered/Not Resolved]
  - Dental prosthesis user [Unknown]
  - Back disorder [Not Recovered/Not Resolved]
  - Blood cholesterol abnormal [Not Recovered/Not Resolved]
  - Pain in extremity [Recovered/Resolved]
  - Artificial crown procedure [Recovered/Resolved]
  - Abdominal pain upper [Not Recovered/Not Resolved]
  - Injection site bruising [Recovered/Resolved]
  - Joint effusion [Recovered/Resolved]
  - Off label use [Unknown]

NARRATIVE: CASE EVENT DATE: 2000
